FAERS Safety Report 9585964 (Version 2)
Quarter: 2013Q4

REPORT INFORMATION
  Report Type: Spontaneous
  Country: IT (occurrence: IT)
  Receive Date: 20131003
  Receipt Date: 20131121
  Transmission Date: 20140711
  Serious: Yes (Hospitalization)
  Sender: FDA-Public Use
  Company Number: IT-JNJFOC-20131000187

PATIENT
  Age: 31 Year
  Sex: Female

DRUGS (2)
  1. HALOPERIDOL [Suspect]
     Indication: ANXIETY
     Route: 048
     Dates: start: 20130310, end: 20130810
  2. VENLAFAXINE HYDROCHLORIDE [Concomitant]
     Indication: ANXIETY
     Route: 065

REACTIONS (2)
  - Dyskinesia [Recovering/Resolving]
  - Medication error [Recovering/Resolving]
